FAERS Safety Report 6072379-9 (Version None)
Quarter: 2009Q1

REPORT INFORMATION
  Report Type: 
  Country: None (occurrence: None)
  Receive Date: 20090210
  Receipt Date: 20090202
  Transmission Date: 20090719
  Serious: Yes (Hospitalization)
  Sender: FDA-Public Use
  Company Number: US-GILEAD-2008-0019558

PATIENT
  Age: 34 Year
  Sex: Male
  Weight: 92.616 kg

DRUGS (9)
  1. TRUVADA [Suspect]
     Indication: PROPHYLAXIS AGAINST HIV INFECTION
     Route: 048
     Dates: start: 20080829, end: 20081111
  2. IMITRIEX [Concomitant]
     Indication: MIGRAINE
     Dosage: 4 ML IM PRN
     Route: 030
  3. IBUPROFEN TABLETS [Concomitant]
     Indication: MUSCULOSKELETAL PAIN
     Dosage: 800 MG PRN
     Route: 048
  4. IBUPROFEN TABLETS [Concomitant]
     Indication: NECK PAIN
  5. FLONASE [Concomitant]
     Indication: SEASONAL ALLERGY
     Dosage: 2 PUFFS QID PRN
  6. CLARITIN-D [Concomitant]
     Indication: SEASONAL ALLERGY
     Route: 048
  7. DILAUDID [Concomitant]
     Indication: HEADACHE
     Dosage: 2 MG PRN
     Route: 048
  8. TORADOL [Concomitant]
     Indication: HEADACHE
     Dosage: 30 MG PRN
     Route: 042
  9. RELAFEN [Concomitant]
     Indication: ARTHRALGIA
     Route: 048

REACTIONS (1)
  - SUICIDAL IDEATION [None]
